FAERS Safety Report 19654728 (Version 1)
Quarter: 2021Q3

REPORT INFORMATION
  Report Type: Spontaneous
  Country: US (occurrence: US)
  Receive Date: 20210804
  Receipt Date: 20210804
  Transmission Date: 20211014
  Serious: No
  Sender: FDA-Public Use
  Company Number: US-BAUSCH-BL-2021-022828

PATIENT
  Sex: Female

DRUGS (2)
  1. RETIN?A MICRO [Suspect]
     Active Substance: TRETINOIN
     Indication: ACNE
     Dosage: EVERY OTHER DAY AT NIGHT
     Route: 061
  2. NIACINAMIDE [Concomitant]
     Active Substance: NIACINAMIDE
     Indication: PRODUCT USED FOR UNKNOWN INDICATION
     Route: 061

REACTIONS (1)
  - Skin exfoliation [Not Recovered/Not Resolved]
